FAERS Safety Report 18680138 (Version 1)
Quarter: 2020Q4

REPORT INFORMATION
  Report Type: Spontaneous
  Country: TH (occurrence: TH)
  Receive Date: 20201230
  Receipt Date: 20201230
  Transmission Date: 20210114
  Serious: Yes (Other)
  Sender: FDA-Public Use
  Company Number: TH-GRANULES-TH-2020GRALIT00112

PATIENT
  Age: 52 Year
  Sex: Male

DRUGS (3)
  1. CYANOCOBALAMIN. [Interacting]
     Active Substance: CYANOCOBALAMIN
     Indication: VITAMIN B12 DEFICIENCY
     Route: 030
  2. FOLATE [Interacting]
     Active Substance: FOLATE SODIUM
     Indication: FOLATE DEFICIENCY
     Route: 048
  3. METFORMIN HCL [Suspect]
     Active Substance: METFORMIN HYDROCHLORIDE
     Indication: DIABETES MELLITUS
     Route: 065

REACTIONS (5)
  - Anaemia macrocytic [Recovered/Resolved]
  - Vitamin B12 deficiency [Recovered/Resolved]
  - Folate deficiency [Recovered/Resolved]
  - Pancytopenia [Recovered/Resolved]
  - Myocardial infarction [Recovered/Resolved]
